FAERS Safety Report 7689242-X (Version None)
Quarter: 2011Q3

REPORT INFORMATION
  Report Type: 
  Country: None (occurrence: None)
  Receive Date: 20110817
  Receipt Date: 20110812
  Transmission Date: 20111222
  Serious: No
  Sender: FDA-Public Use
  Company Number: US-PFIZER INC-2011187897

PATIENT
  Sex: Female

DRUGS (1)
  1. ESTRING [Suspect]
     Dosage: UNK

REACTIONS (1)
  - VISUAL IMPAIRMENT [None]
